FAERS Safety Report 8758950 (Version 1)
Quarter: 2012Q4

REPORT INFORMATION
  Report Type: 
  Country: US (occurrence: US)
  Receive Date: 20120829
  Receipt Date: 20120829
  Transmission Date: 20130627
  Serious: Yes (Hospitalization)
  Sender: FDA-Public Use
  Company Number: US-BAYER-2012-088043

PATIENT
  Age: 17 Year
  Sex: Female

DRUGS (8)
  1. YASMIN [Suspect]
  2. ACETAMINOPHEN [Concomitant]
  3. CLINDAMYCIN [Concomitant]
  4. IBUPROFEN [Concomitant]
  5. METFORMIN [Concomitant]
  6. SPIRONOLACTONE [Concomitant]
  7. RETIN-A [Concomitant]
  8. ATIVAN [Concomitant]

REACTIONS (1)
  - Intracranial venous sinus thrombosis [None]
